FAERS Safety Report 8896010 (Version 2)
Quarter: 2012Q4

REPORT INFORMATION
  Report Type: 
  Country: US (occurrence: US)
  Receive Date: 20121108
  Receipt Date: 20121205
  Transmission Date: 20130627
  Serious: Yes (Death, Hospitalization, Other)
  Sender: FDA-Public Use
  Company Number: US-CELGENEUS-163-21880-12110544

PATIENT
  Age: 79 None
  Sex: Male

DRUGS (2)
  1. REVLIMID [Suspect]
     Indication: 5Q MINUS MDS
     Dosage: 10 Milligram
     Route: 048
     Dates: start: 201209
  2. REVLIMID [Suspect]
     Dosage: 5 Milligram
     Route: 048
     Dates: start: 20121005, end: 20121022

REACTIONS (3)
  - Myelodysplastic syndrome [Fatal]
  - Myocardial infarction [Unknown]
  - Cerebrovascular accident [Unknown]
